FAERS Safety Report 25155171 (Version 1)
Quarter: 2025Q2

REPORT INFORMATION
  Report Type: Other
  Country: US (occurrence: US)
  Receive Date: 20250403
  Receipt Date: 20250403
  Transmission Date: 20250717
  Serious: Yes (Hospitalization, Other)
  Sender: ANI
  Company Number: US-ANIPHARMA-022242

PATIENT
  Age: 66 Year
  Sex: Female

DRUGS (1)
  1. DIPYRIDAMOLE [Suspect]
     Active Substance: DIPYRIDAMOLE
     Indication: Prophylaxis

REACTIONS (2)
  - Angina pectoris [Recovering/Resolving]
  - Electrocardiogram ST segment depression [Recovering/Resolving]
